FAERS Safety Report 4955863-8 (Version None)
Quarter: 2006Q1

REPORT INFORMATION
  Report Type: 
  Country: None (occurrence: None)
  Receive Date: 20060327
  Receipt Date: 20060327
  Transmission Date: 20060701
  Serious: Yes (Hospitalization)
  Sender: FDA-Public Use
  Company Number: None

PATIENT
  Age: 61 Year
  Sex: Female
  Weight: 107 kg

DRUGS (8)
  1. TEQUIN [Suspect]
     Indication: PNEUMONIA
     Dosage: 400 MG STAT IVPB
     Route: 040
     Dates: start: 20060319
  2. LISPRO INSULIN SLIDING SCALE SUBCUT [Suspect]
     Indication: HYPERGLYCAEMIA
     Dosage: SLIDING SCALE Q 4HRS SUBCUT
     Route: 058
     Dates: start: 20060315
  3. NPH INSULIN [Concomitant]
  4. PREVACID [Concomitant]
  5. COMBIVENT [Concomitant]
  6. DIGOXIN [Concomitant]
  7. ALDACTONE [Concomitant]
  8. MONOPRIL [Concomitant]

REACTIONS (1)
  - BLOOD GLUCOSE INCREASED [None]
